FAERS Safety Report 10168918 (Version 1)
Quarter: 2014Q2

REPORT INFORMATION
  Report Type: Spontaneous
  Country: US (occurrence: None)
  Receive Date: 20140512
  Receipt Date: 20140512
  Transmission Date: 20141212
  Serious: Yes (Hospitalization)
  Sender: FDA-Public Use
  Company Number: None

PATIENT
  Age: 59 Year
  Sex: Female

DRUGS (7)
  1. DASATINIB [Suspect]
     Indication: LYMPHOCYTIC LEUKAEMIA
     Route: 048
     Dates: start: 20140325, end: 20140403
  2. RITUXIMAB [Concomitant]
  3. MESNA [Concomitant]
  4. CYTARABINE [Concomitant]
  5. CYCLOPHOSPHAMIDE [Concomitant]
  6. VINCRISTINE [Concomitant]
  7. DOXORUBICIN [Concomitant]

REACTIONS (5)
  - Pain [None]
  - Rash [None]
  - Skin swelling [None]
  - Swelling face [None]
  - Alopecia [None]
